FAERS Safety Report 8030475-0 (Version None)
Quarter: 2012Q1

REPORT INFORMATION
  Report Type: 
  Country: None (occurrence: None)
  Receive Date: 20120105
  Receipt Date: 20111221
  Transmission Date: 20120608
  Serious: Yes (Hospitalization)
  Sender: FDA-Public Use
  Company Number: TPA2011A08795

PATIENT
  Age: 69 Year
  Sex: Female

DRUGS (1)
  1. ULORIC [Suspect]
     Dosage: 120 MG (120 MG, 1 IN 1 D) ORAL
     Route: 048

REACTIONS (2)
  - AZOTAEMIA [None]
  - RENAL FAILURE CHRONIC [None]
